FAERS Safety Report 23522382 (Version 1)
Quarter: 2024Q1

REPORT INFORMATION
  Report Type: Spontaneous
  Country: US (occurrence: None)
  Receive Date: 20240213
  Receipt Date: 20240213
  Transmission Date: 20240410
  Serious: Yes (Death)
  Sender: FDA-Public Use
  Company Number: None

PATIENT
  Age: 27 Year
  Sex: Male

DRUGS (1)
  1. PIRFENIDONE [Suspect]
     Active Substance: PIRFENIDONE
     Indication: Bronchitis chronic
     Dosage: 801MG TID ORAL?
     Route: 048
     Dates: start: 20221215, end: 20230127

REACTIONS (3)
  - Pneumopericardium [None]
  - Disease recurrence [None]
  - Chronic respiratory failure [None]

NARRATIVE: CASE EVENT DATE: 20240201
